FAERS Safety Report 9115228 (Version 2)
Quarter: 2013Q1

REPORT INFORMATION
  Report Type: Spontaneous
  Country: DE (occurrence: DE)
  Receive Date: 20130225
  Receipt Date: 20130319
  Transmission Date: 20140127
  Serious: Yes (Other)
  Sender: FDA-Public Use
  Company Number: DE-ASTELLAS-2013EU001599

PATIENT
  Age: 59 Year
  Sex: Female
  Weight: 62 kg

DRUGS (3)
  1. PROGRAF [Suspect]
     Indication: LIVER TRANSPLANT
     Dosage: 1 MG, BID
     Route: 048
     Dates: start: 201006
  2. CELLCEPT                           /01275102/ [Concomitant]
     Indication: LIVER TRANSPLANT
     Dosage: 500 MG, BID
     Route: 048
     Dates: start: 201006
  3. L THYROXIN [Concomitant]
     Dosage: 125 UG, UID/QD
     Route: 048

REACTIONS (1)
  - Complex regional pain syndrome [Not Recovered/Not Resolved]
